FAERS Safety Report 4289299-2 (Version None)
Quarter: 2004Q1

REPORT INFORMATION
  Report Type: 
  Country: None (occurrence: None)
  Receive Date: 20040209
  Receipt Date: 20040209
  Transmission Date: 20041129
  Serious: Yes (Hospitalization)
  Sender: FDA-Public Use
  Company Number: None

PATIENT
  Sex: Female

DRUGS (1)
  1. PREVACID [Suspect]
     Dosage: DAILY
     Dates: start: 20030506, end: 20030520

REACTIONS (3)
  - PYREXIA [None]
  - RASH [None]
  - SWELLING [None]
